FAERS Safety Report 5522008-5 (Version None)
Quarter: 2007Q4

REPORT INFORMATION
  Report Type: 
  Country: None (occurrence: None)
  Receive Date: 20071115
  Receipt Date: 20071030
  Transmission Date: 20080405
  Serious: Yes (Other)
  Sender: FDA-Public Use
  Company Number: 8027823

PATIENT

DRUGS (1)
  1. KEPPRA [Suspect]

REACTIONS (1)
  - IMMUNOGLOBULINS DECREASED [None]
